FAERS Safety Report 9534314 (Version 1)
Quarter: 2013Q3

REPORT INFORMATION
  Report Type: Spontaneous
  Country: KR (occurrence: KR)
  Receive Date: 20130918
  Receipt Date: 20130918
  Transmission Date: 20140515
  Serious: Yes (Other)
  Sender: FDA-Public Use
  Company Number: KR-GLAXOSMITHKLINE-B0923492A

PATIENT
  Sex: Male

DRUGS (2)
  1. REQUIP [Suspect]
     Indication: PARKINSON^S DISEASE
     Dosage: .5MG TWICE PER DAY
     Route: 065
     Dates: end: 20130912
  2. AMANTADINE [Concomitant]
     Indication: PARKINSON^S DISEASE

REACTIONS (2)
  - Dementia [Recovered/Resolved]
  - Speech disorder [Recovered/Resolved]
